FAERS Safety Report 6552670-X (Version None)
Quarter: 2010Q1

REPORT INFORMATION
  Report Type: 
  Country: None (occurrence: None)
  Receive Date: 20100126
  Receipt Date: 20100119
  Transmission Date: 20100710
  Serious: Yes (Hospitalization)
  Sender: FDA-Public Use
  Company Number: B0613179A

PATIENT
  Age: 55 Year
  Sex: Female

DRUGS (7)
  1. FORTUM [Suspect]
     Indication: ANTIBIOTIC THERAPY
     Route: 065
     Dates: start: 20090222
  2. TAVANIC [Suspect]
     Indication: ANTIBIOTIC THERAPY
     Route: 048
     Dates: start: 20090222
  3. PROGRAF [Concomitant]
     Indication: DRUG USE FOR UNKNOWN INDICATION
     Route: 048
  4. CELLCEPT [Concomitant]
     Indication: DRUG USE FOR UNKNOWN INDICATION
     Route: 048
  5. VALGANCICLOVIR HCL [Concomitant]
     Indication: DRUG USE FOR UNKNOWN INDICATION
     Dosage: 450MG UNKNOWN
     Route: 048
  6. SANDOGLOBULIN [Concomitant]
     Indication: IMMUNOGLOBULINS DECREASED
     Dosage: 72G PER DAY
     Route: 065
     Dates: start: 20090222, end: 20090222
  7. REHYDRATION [Concomitant]

REACTIONS (3)
  - AGRANULOCYTOSIS [None]
  - FEBRILE NEUTROPENIA [None]
  - LUNG DISORDER [None]
